FAERS Safety Report 20140827 (Version 1)
Quarter: 2021Q4

REPORT INFORMATION
  Report Type: Spontaneous
  Country: AR (occurrence: AR)
  Receive Date: 20211202
  Receipt Date: 20211202
  Transmission Date: 20220303
  Serious: Yes (Other)
  Sender: FDA-Public Use
  Company Number: AR-NOVARTISPH-NVSC2021AR115823

PATIENT
  Age: 63 Year
  Sex: Female

DRUGS (1)
  1. TIMOLOL MALEATE\TRAVOPROST [Suspect]
     Active Substance: TIMOLOL MALEATE\TRAVOPROST
     Indication: Glaucoma
     Dosage: UNK, (SINCE 8 TO 10 YEARS AGO)
     Route: 065

REACTIONS (4)
  - Cataract [Unknown]
  - Feeling of despair [Unknown]
  - Anxiety [Unknown]
  - Product availability issue [Unknown]
